FAERS Safety Report 4644620-8 (Version None)
Quarter: 2005Q2

REPORT INFORMATION
  Report Type: 
  Country: None (occurrence: None)
  Receive Date: 20050426
  Receipt Date: 20050420
  Transmission Date: 20051028
  Serious: Yes (Other)
  Sender: FDA-Public Use
  Company Number: PHBS2005ES05649

PATIENT
  Age: 69 Year
  Sex: Female

DRUGS (1)
  1. GLEEVEC [Suspect]
     Indication: CHRONIC MYELOID LEUKAEMIA
     Dosage: 800 MG/D
     Route: 048
     Dates: start: 20010901, end: 20041101

REACTIONS (3)
  - CHRONIC MYELOID LEUKAEMIA [None]
  - RENAL CELL CARCINOMA STAGE UNSPECIFIED [None]
  - THROMBOCYTHAEMIA [None]
